FAERS Safety Report 4435687-0 (Version None)
Quarter: 2004Q3

REPORT INFORMATION
  Report Type: 
  Country: None (occurrence: None)
  Receive Date: 20040726
  Receipt Date: 20040406
  Transmission Date: 20050211
  Serious: No
  Sender: FDA-Public Use
  Company Number: US_030897051

PATIENT
  Age: 82 Year
  Sex: Female
  Weight: 40 kg

DRUGS (4)
  1. FORTEO [Suspect]
     Indication: OSTEOPOROSIS
     Dosage: 20 UG DAY
     Dates: start: 20030128
  2. FORTEO [Suspect]
     Indication: SPINAL COMPRESSION FRACTURE
     Dosage: 20 UG DAY
     Dates: start: 20030128
  3. THYROID TAB [Concomitant]
  4. CALCIUM WITH VITAMIN D [Concomitant]

REACTIONS (6)
  - BALANCE DISORDER [None]
  - BLOOD CALCIUM INCREASED [None]
  - INJECTION SITE HAEMORRHAGE [None]
  - NAUSEA [None]
  - VEIN DISORDER [None]
  - WEIGHT DECREASED [None]
